FAERS Safety Report 7146579-0 (Version None)
Quarter: 2010Q4

REPORT INFORMATION
  Report Type: 
  Country: None (occurrence: None)
  Receive Date: 20101208
  Receipt Date: 20101130
  Transmission Date: 20110411
  Serious: Yes (Other)
  Sender: FDA-Public Use
  Company Number: US-ABBOTT-09P-163-0600778-00

PATIENT
  Sex: Male

DRUGS (1)
  1. KALETRA [Suspect]
     Indication: HIV INFECTION
     Dates: start: 20060101

REACTIONS (5)
  - ANOGENITAL WARTS [None]
  - NASOPHARYNGITIS [None]
  - PARKINSON'S DISEASE [None]
  - RECTAL CANCER [None]
  - T-LYMPHOCYTE COUNT DECREASED [None]
